FAERS Safety Report 9363721 (Version 2)
Quarter: 2013Q3

REPORT INFORMATION
  Report Type: Spontaneous
  Country: CO (occurrence: CO)
  Receive Date: 20130624
  Receipt Date: 20130719
  Transmission Date: 20140515
  Serious: Yes (Other)
  Sender: FDA-Public Use
  Company Number: CO-AMGEN-COLSP2013043894

PATIENT
  Age: 60 Year
  Sex: Female

DRUGS (5)
  1. ENBREL [Suspect]
     Indication: RHEUMATOID ARTHRITIS
     Dosage: 50 MG, WEEKLY
     Route: 058
     Dates: start: 201212
  2. ENBREL [Suspect]
     Dosage: UNK
     Route: 065
     Dates: start: 201302
  3. METHOTREXATE [Concomitant]
     Indication: RHEUMATOID ARTHRITIS
     Dosage: 5 TABLETS OF 2.5MG, WEEKLY
     Route: 048
     Dates: start: 2005
  4. DICLOFENAC [Concomitant]
     Indication: PAIN
     Dosage: 100 MG, AS NEEDED
     Route: 048
     Dates: start: 2005
  5. EUGLUCON [Concomitant]
     Indication: DIABETES MELLITUS
     Dosage: 5 MG, 1X/DAY
     Route: 048
     Dates: start: 2009

REACTIONS (3)
  - Arthralgia [Not Recovered/Not Resolved]
  - Injection site injury [Unknown]
  - Activities of daily living impaired [Not Recovered/Not Resolved]
